FAERS Safety Report 7159555-9 (Version None)
Quarter: 2010Q4

REPORT INFORMATION
  Report Type: 
  Country: None (occurrence: None)
  Receive Date: 20101214
  Receipt Date: 20100921
  Transmission Date: 20110411
  Serious: No
  Sender: FDA-Public Use
  Company Number: US-ASTRAZENECA-2010SE44400

PATIENT
  Age: 68 Year
  Sex: Female
  Weight: 54.4 kg

DRUGS (5)
  1. CRESTOR [Suspect]
     Route: 048
     Dates: start: 20090101
  2. NORVASC [Concomitant]
     Indication: HYPERTENSION
  3. LEVOTHYROXINE [Concomitant]
     Indication: HYPOTHYROIDISM
  4. METOPROLOL [Concomitant]
     Indication: HYPERTENSION
  5. VITAMINS [Concomitant]

REACTIONS (3)
  - HAEMATURIA [None]
  - HEPATIC CYST [None]
  - PANCREATIC CYST [None]
